FAERS Safety Report 8560137-2 (Version None)
Quarter: 2012Q3

REPORT INFORMATION
  Report Type: 
  Country: None (occurrence: None)
  Receive Date: 20120802
  Receipt Date: 20120723
  Transmission Date: 20120928
  Serious: No
  Sender: FDA-Public Use
  Company Number: US-009507513-1207USA011307

PATIENT

DRUGS (4)
  1. ZOCOR [Suspect]
     Dosage: 10 MG, UNK
     Route: 048
  2. PLAVIX [Suspect]
  3. PRILOSEC [Suspect]
  4. FLECTOR [Suspect]
     Dosage: UNK

REACTIONS (5)
  - WRONG TECHNIQUE IN DRUG USAGE PROCESS [None]
  - URINE OUTPUT DECREASED [None]
  - DYSURIA [None]
  - DIZZINESS [None]
  - FAECES DISCOLOURED [None]
